FAERS Safety Report 5716620-8 (Version None)
Quarter: 2008Q2

REPORT INFORMATION
  Report Type: 
  Country: None (occurrence: None)
  Receive Date: 20080424
  Receipt Date: 20080411
  Transmission Date: 20081010
  Serious: No
  Sender: FDA-Public Use
  Company Number: VN-AMGEN-QUU274671

PATIENT
  Age: 36 Year
  Sex: Male
  Weight: 62 kg

DRUGS (1)
  1. NEUPOGEN [Suspect]
     Indication: AGRANULOCYTOSIS
     Route: 058
     Dates: start: 20080328, end: 20080328

REACTIONS (2)
  - BACK PAIN [None]
  - MUSCLE SPASMS [None]
